FAERS Safety Report 8138021 (Version 2)
Quarter: 2016Q3

REPORT INFORMATION
  Report Type: Report from Study
  Country: KR (occurrence: KR)
  Receive Date: 20110915
  Receipt Date: 20160715
  Transmission Date: 20161109
  Serious: Yes (Hospitalization, Other)
  Sender: FDA-Public Use
  Company Number: KR-UCBSA-017239

PATIENT
  Age: 51 Year
  Sex: Female
  Weight: 45.3 kg

DRUGS (20)
  1. VITAMINS WITH MINERALS [Concomitant]
     Active Substance: MINERALS\VITAMINS
     Indication: OSTEOPOROSIS PROPHYLAXIS
     Dosage: 1 TABLET
     Route: 048
     Dates: start: 20100917
  2. METFORMIN HYDROCHLORIDE. [Concomitant]
     Active Substance: METFORMIN HYDROCHLORIDE
     Dosage: 500 MG, ONCE DAILY (QD)
     Route: 048
     Dates: start: 20101015, end: 20101015
  3. METFORMIN HYDROCHLORIDE. [Concomitant]
     Active Substance: METFORMIN HYDROCHLORIDE
     Indication: DIABETES MELLITUS
     Dosage: 500 MG, ONCE DAILY (QD)
     Route: 048
     Dates: start: 20091127, end: 20100813
  4. ASPIRIN. [Concomitant]
     Active Substance: ASPIRIN
     Indication: THROMBOSIS PROPHYLAXIS
     Dosage: 100 MG, ONCE DAILY (QD)
     Route: 048
     Dates: start: 20091127, end: 20100813
  5. FOLIC ACID. [Concomitant]
     Active Substance: FOLIC ACID
     Indication: RHEUMATOID ARTHRITIS
     Dosage: 1 MG, ONCE DAILY (QD)
     Route: 048
     Dates: start: 20010604, end: 20100813
  6. ATORVASTATIN [Concomitant]
     Active Substance: ATORVASTATIN
     Indication: PROPHYLAXIS
     Dosage: 20 MG, ONCE DAILY (QD)
     Route: 048
     Dates: start: 20091127, end: 20100813
  7. CERTOLIZUMAB PEGOL RA [Suspect]
     Active Substance: CERTOLIZUMAB PEGOL
     Indication: RHEUMATOID ARTHRITIS
     Dosage: 200 MG, EV 2 WEEKS(QOW)
     Route: 058
     Dates: start: 20100428, end: 20100721
  8. DEFLAZACORT [Concomitant]
     Active Substance: DEFLAZACORT
     Indication: RHEUMATOID ARTHRITIS
     Dosage: 6 MG, ONCE DAILY (QD)
     Route: 048
     Dates: start: 20040108, end: 20100813
  9. VITAMINS WITH MINERALS [Concomitant]
     Active Substance: MINERALS\VITAMINS
     Indication: OSTEOPOROSIS PROPHYLAXIS
     Dosage: 1 TABLET DAILY
     Route: 048
     Dates: start: 20100107, end: 20100813
  10. METHOTREXATE. [Concomitant]
     Active Substance: METHOTREXATE
     Indication: RHEUMATOID ARTHRITIS
     Dosage: 15 MG, WEEKLY (QW)
     Route: 048
     Dates: start: 20020102, end: 20100813
  11. FOLIC ACID. [Concomitant]
     Active Substance: FOLIC ACID
     Dosage: 1 MG, ONCE DAILY (QD)
     Route: 048
     Dates: start: 20100909
  12. MELOXICAM. [Concomitant]
     Active Substance: MELOXICAM
     Indication: RHEUMATOID ARTHRITIS
     Dosage: 7.5 MG, 2X/DAY (BID)
     Route: 048
     Dates: start: 20010604, end: 20100813
  13. REBAMIPIDE [Concomitant]
     Active Substance: REBAMIPIDE
     Indication: PROPHYLAXIS AGAINST GASTROINTESTINAL ULCER
     Dosage: 100 MG, 2X/DAY (BID)
     Route: 048
     Dates: start: 20010604, end: 20100813
  14. METHOTREXATE. [Concomitant]
     Active Substance: METHOTREXATE
     Dosage: 7.5 MG, WEEKLY (QW)
     Route: 048
     Dates: start: 20100909
  15. FERROUS SULFATE. [Concomitant]
     Active Substance: FERROUS SULFATE
     Dosage: 256 MG, 2X/DAY (BID)
     Route: 048
     Dates: start: 20100917
  16. ASPIRIN. [Concomitant]
     Active Substance: ASPIRIN
     Dosage: 100 MG, ONCE DAILY (QD)
     Route: 048
     Dates: start: 20101015
  17. FERROUS SULFATE. [Concomitant]
     Active Substance: FERROUS SULFATE
     Indication: HAEMOGLOBIN DECREASED
     Dosage: 256 MG, 2X/DAY (BID)
     Route: 048
     Dates: start: 20090624, end: 20100813
  18. ATORVASTATIN [Concomitant]
     Active Substance: ATORVASTATIN
     Dosage: 20 MG, ONCE DAILY (QD)
     Route: 048
     Dates: start: 20101015
  19. DEFLAZACORT [Concomitant]
     Active Substance: DEFLAZACORT
     Dosage: 9 MG, ONCE DAILY (QD)
     Route: 048
     Dates: start: 20100917
  20. PIROXICAM. [Concomitant]
     Active Substance: PIROXICAM
     Indication: RHEUMATOID ARTHRITIS
     Dosage: 48 MG, AS NEEDED (PRN)
     Route: 061
     Dates: start: 20100203, end: 20100813

REACTIONS (6)
  - Oral candidiasis [Recovered/Resolved]
  - Colitis ischaemic [Recovered/Resolved]
  - Mucosal inflammation [Recovered/Resolved]
  - Pancytopenia [Recovered/Resolved]
  - Small intestinal obstruction [Recovered/Resolved]
  - Chronic kidney disease [Not Recovered/Not Resolved]

NARRATIVE: CASE EVENT DATE: 20100731
